FAERS Safety Report 13370956 (Version 1)
Quarter: 2017Q1

REPORT INFORMATION
  Report Type: Spontaneous
  Country: JP (occurrence: JP)
  Receive Date: 20170324
  Receipt Date: 20170324
  Transmission Date: 20170429
  Serious: Yes (Life-Threatening, Hospitalization)
  Sender: FDA-Public Use
  Company Number: JP-NAPPMUNDI-GBR-2017-0044265

PATIENT
  Age: 76 Year
  Sex: Male

DRUGS (3)
  1. LONG-ACTING MUSCARINIC ANTAGONISTS [Concomitant]
     Indication: CHRONIC OBSTRUCTIVE PULMONARY DISEASE
  2. LONG-ACTING BETA-AGONIST [Concomitant]
     Indication: CHRONIC OBSTRUCTIVE PULMONARY DISEASE
  3. THEOPHYLLINE [Suspect]
     Active Substance: THEOPHYLLINE ANHYDROUS
     Indication: CHRONIC OBSTRUCTIVE PULMONARY DISEASE
     Dosage: 200 MG, BID
     Route: 048

REACTIONS (7)
  - Cardiac failure congestive [Recovered/Resolved]
  - Toxicity to various agents [Recovered/Resolved]
  - Multi-organ disorder [Recovered/Resolved]
  - Hepatic function abnormal [Recovered/Resolved]
  - Acute kidney injury [Recovered/Resolved]
  - Supraventricular tachycardia [Recovered/Resolved]
  - Tachycardia induced cardiomyopathy [Recovered/Resolved]
